FAERS Safety Report 9868193 (Version 8)
Quarter: 2014Q2

REPORT INFORMATION
  Report Type: Report from Study
  Country: ES (occurrence: ES)
  Receive Date: 20140204
  Receipt Date: 20140408
  Transmission Date: 20141212
  Serious: Yes (Death, Hospitalization)
  Sender: FDA-Public Use
  Company Number: PHHO2014ES001421

PATIENT
  Sex: 0

DRUGS (10)
  1. MYFORTIC [Suspect]
     Indication: RENAL TRANSPLANT
     Dosage: 180 MG, QD
     Route: 048
     Dates: start: 20140117, end: 20140120
  2. MYFORTIC [Suspect]
     Dosage: 360 MG, Q12H
     Route: 048
     Dates: start: 20140121, end: 20140122
  3. MYFORTIC [Suspect]
     Dosage: 180 MG, Q12H
     Route: 048
     Dates: start: 20140210, end: 20140214
  4. TACROLIMUS [Suspect]
     Indication: RENAL TRANSPLANT
     Dosage: 1 MG, QD
     Route: 048
     Dates: start: 20140117, end: 20140120
  5. NO TREATMENT RECEIVED [Suspect]
     Indication: RENAL TRANSPLANT
     Dosage: NO TREATMENT
  6. AMIODARONE [Suspect]
     Indication: ARRHYTHMIA
     Dosage: 450 MG, TID
     Route: 042
     Dates: start: 20140123, end: 20140127
  7. AMIODARONE [Suspect]
     Dosage: 200 MG, BID
     Route: 048
     Dates: start: 20140127, end: 20140128
  8. FUROSEMIDE [Concomitant]
     Indication: DIURETIC THERAPY
     Dosage: UNK
     Dates: start: 20140116, end: 20140122
  9. PANTOPRAZOL [Concomitant]
     Indication: PROPHYLAXIS
     Dosage: UNK
     Dates: start: 20140116, end: 20140122
  10. FITOMENADIONA [Concomitant]
     Indication: HAEMORRHAGE
     Dosage: 10 MG, TID EV
     Dates: start: 20140131

REACTIONS (3)
  - Intestinal perforation [Fatal]
  - Gastrointestinal haemorrhage [Recovering/Resolving]
  - Haemodynamic instability [Recovered/Resolved]
